FAERS Safety Report 4923609-5 (Version None)
Quarter: 2006Q1

REPORT INFORMATION
  Report Type: 
  Country: None (occurrence: None)
  Receive Date: 20060227
  Receipt Date: 20060217
  Transmission Date: 20060701
  Serious: Yes (Life-Threatening, Hospitalization)
  Sender: FDA-Public Use
  Company Number: FR-JNJFOC-20060204336

PATIENT
  Age: 49 Year
  Sex: Female
  Weight: 84 kg

DRUGS (7)
  1. REMICADE [Suspect]
     Route: 042
  2. REMICADE [Suspect]
     Indication: CROHN'S DISEASE
     Route: 042
  3. IMUREL [Suspect]
     Indication: CROHN'S DISEASE
     Route: 048
  4. CORTANCYL [Suspect]
     Indication: CROHN'S DISEASE
     Route: 048
  5. INIPOMP [Concomitant]
  6. LEXOMIL [Concomitant]
  7. TAHOR [Concomitant]

REACTIONS (8)
  - CIRCULATORY COLLAPSE [None]
  - DIARRHOEA [None]
  - HYPOVOLAEMIC SHOCK [None]
  - LACTIC ACIDOSIS [None]
  - PANCREATITIS [None]
  - RENAL FAILURE [None]
  - SALMONELLA SEPSIS [None]
  - SUBENDOCARDIAL ISCHAEMIA [None]
